FAERS Safety Report 12647922 (Version 1)
Quarter: 2016Q3

REPORT INFORMATION
  Report Type: Spontaneous
  Country: TW (occurrence: TW)
  Receive Date: 20160812
  Receipt Date: 20160812
  Transmission Date: 20161109
  Serious: Yes (Hospitalization)
  Sender: FDA-Public Use
  Company Number: TW-MYLANLABS-2016M1033709

PATIENT

DRUGS (1)
  1. KETAMINE [Suspect]
     Active Substance: KETAMINE
     Indication: PRODUCT USED FOR UNKNOWN INDICATION
     Dosage: 6G
     Route: 065

REACTIONS (4)
  - Drug dependence [Unknown]
  - Major depression [Recovered/Resolved]
  - Drug withdrawal syndrome [Unknown]
  - Drug abuse [Unknown]
